FAERS Safety Report 7564675-0 (Version None)
Quarter: 2011Q2

REPORT INFORMATION
  Report Type: 
  Country: None (occurrence: None)
  Receive Date: 20110622
  Receipt Date: 20100913
  Transmission Date: 20111010
  Serious: Yes (Life-Threatening, Other)
  Sender: FDA-Public Use
  Company Number: US-MYLANLABS-2010S1015158

PATIENT
  Age: 59 Year
  Sex: Female

DRUGS (3)
  1. CHEMOTHERAPEUTICS [Suspect]
     Indication: BREAST CANCER
  2. CLOZAPINE [Suspect]
     Route: 048
     Dates: end: 20100817
  3. CLOZAPINE [Suspect]
     Route: 048
     Dates: end: 20100817

REACTIONS (3)
  - GRANULOCYTOPENIA [None]
  - AGRANULOCYTOSIS [None]
  - LEUKOPENIA [None]
